FAERS Safety Report 4896150-6 (Version None)
Quarter: 2006Q1

REPORT INFORMATION
  Report Type: 
  Country: None (occurrence: None)
  Receive Date: 20060126
  Receipt Date: 20060113
  Transmission Date: 20060701
  Serious: Yes (Other)
  Sender: FDA-Public Use
  Company Number: 2006009623

PATIENT
  Age: 66 Year
  Sex: Male
  Weight: 185 kg

DRUGS (4)
  1. CARDURA [Suspect]
     Indication: HYPERTENSION
     Dosage: (4 MG)
  2. CLONIDINE [Concomitant]
  3. XANAX [Concomitant]
  4. CELEBREX [Concomitant]

REACTIONS (2)
  - BENIGN PROSTATIC HYPERPLASIA [None]
  - ERECTILE DYSFUNCTION [None]
